FAERS Safety Report 6394308-0 (Version None)
Quarter: 2009Q4

REPORT INFORMATION
  Report Type: 
  Country: None (occurrence: None)
  Receive Date: 20091006
  Receipt Date: 20090925
  Transmission Date: 20100525
  Serious: Yes (Hospitalization)
  Sender: FDA-Public Use
  Company Number: 1000008895

PATIENT
  Age: 54 Year
  Sex: Male

DRUGS (6)
  1. ACAMPROSATE         (ACAMPROSTE CALCIUM) MILLIGRAM, TABLETS) [Suspect]
     Indication: ALCOHOLISM
     Dosage: 6 DOSAGE FORMS (1 DOSAGE FORMS, 6 IN 1 D),ORAL
     Route: 048
     Dates: start: 20090825, end: 20090828
  2. SERESTA [Concomitant]
  3. LAROXYL [Concomitant]
  4. IMOVANE [Concomitant]
  5. AMLODIPINE [Concomitant]
  6. APROVEL [Concomitant]

REACTIONS (1)
  - DYSARTHRIA [None]
